FAERS Safety Report 4337322-9 (Version None)
Quarter: 2004Q2

REPORT INFORMATION
  Report Type: 
  Country: None (occurrence: None)
  Receive Date: 20040408
  Receipt Date: 20040330
  Transmission Date: 20050107
  Serious: Yes (Other)
  Sender: FDA-Public Use
  Company Number: K200400467

PATIENT
  Sex: Female

DRUGS (1)
  1. ALTACE [Suspect]

REACTIONS (1)
  - ANAPHYLACTIC SHOCK [None]
